FAERS Safety Report 4610476-2 (Version None)
Quarter: 2005Q1

REPORT INFORMATION
  Report Type: 
  Country: None (occurrence: None)
  Receive Date: 20050315
  Receipt Date: 20050303
  Transmission Date: 20050727
  Serious: Yes (Hospitalization)
  Sender: FDA-Public Use
  Company Number: HQWYE857604MAR05

PATIENT
  Sex: Female

DRUGS (2)
  1. EFFEXOR XR [Suspect]
     Indication: PANIC ATTACK
     Dosage: 5 PILLS (OVERDOSE AMOUNT - TOTAL DOSAGE OF OVERDOSE UNKNOWN
     Dates: start: 20050227, end: 20050227
  2. TYLENOL [Suspect]
     Dosage: ^30 + QUICK RELEASE^ CAPLETS (OVERDOSE  AMOUNT - TOTAL DOSEAGE OF OVERDOSE UNKNOWN)
     Dates: start: 20050227, end: 20050227

REACTIONS (3)
  - HEPATOCELLULAR DAMAGE [None]
  - INTENTIONAL MISUSE [None]
  - SUICIDE ATTEMPT [None]
